FAERS Safety Report 24388237 (Version 1)
Quarter: 2024Q4

REPORT INFORMATION
  Report Type: Spontaneous
  Country: US (occurrence: None)
  Receive Date: 20241002
  Receipt Date: 20241002
  Transmission Date: 20250114
  Serious: No
  Sender: Public
  Company Number: None

PATIENT
  Sex: Male
  Weight: 30.2 kg

DRUGS (5)
  1. CAMPTOSAR [Suspect]
     Active Substance: IRINOTECAN HYDROCHLORIDE
  2. ACCUTANE [Suspect]
     Active Substance: ISOTRETINOIN
  3. LEUKINE [Suspect]
     Active Substance: SARGRAMOSTIM
  4. TEMOZOLOMIDE [Suspect]
     Active Substance: TEMOZOLOMIDE
  5. DINUTUXIMAB [Suspect]
     Active Substance: DINUTUXIMAB

REACTIONS (5)
  - Second primary malignancy [None]
  - Acute myeloid leukaemia [None]
  - Normochromic normocytic anaemia [None]
  - Neutropenia [None]
  - Platelet anisocytosis [None]

NARRATIVE: CASE EVENT DATE: 20240918
